FAERS Safety Report 18228655 (Version 1)
Quarter: 2020Q3

REPORT INFORMATION
  Report Type: Spontaneous
  Country: US (occurrence: US)
  Receive Date: 20200903
  Receipt Date: 20200903
  Transmission Date: 20201103
  Serious: No
  Sender: FDA-Public Use
  Company Number: US-BECTON DICKINSON-2019BDN00284

PATIENT
  Sex: Female
  Weight: 95.24 kg

DRUGS (6)
  1. LETAIRIS [Concomitant]
     Active Substance: AMBRISENTAN
  2. REMODULIN [Concomitant]
     Active Substance: TREPROSTINIL
     Dosage: 50 NG/KG/MIN, CONTINUOUS
     Route: 042
     Dates: start: 20190702
  3. UPTRAVI [Concomitant]
     Active Substance: SELEXIPAG
  4. XARELTO [Concomitant]
     Active Substance: RIVAROXABAN
  5. CHLORAPREP [Suspect]
     Active Substance: CHLORHEXIDINE GLUCONATE\ISOPROPYL ALCOHOL
     Indication: INFECTION PROPHYLAXIS
     Dosage: UNK
     Route: 061
  6. ADCIRCA [Concomitant]
     Active Substance: TADALAFIL

REACTIONS (1)
  - Application site pain [Unknown]
